FAERS Safety Report 4506866-9 (Version None)
Quarter: 2004Q4

REPORT INFORMATION
  Report Type: 
  Country: None (occurrence: None)
  Receive Date: 20041117
  Receipt Date: 20041026
  Transmission Date: 20050328
  Serious: Yes (Other)
  Sender: FDA-Public Use
  Company Number: IND-AE-04-SAN-010

PATIENT
  Age: 55 Year
  Sex: Female
  Weight: 133.8111 kg

DRUGS (6)
  1. SANCTURA [Suspect]
     Indication: HYPERTONIC BLADDER
     Dosage: 20 MG - QD - ORAL
     Route: 048
     Dates: start: 20041020, end: 20041024
  2. ATENOLOL [Concomitant]
  3. ZOLOFT [Concomitant]
  4. HYDROCHLOROTHIAZIDE [Concomitant]
  5. PREVACID [Concomitant]
  6. FEMARA [Concomitant]

REACTIONS (2)
  - DIABETES MELLITUS [None]
  - VISION BLURRED [None]
